FAERS Safety Report 15279859 (Version 1)
Quarter: 2018Q3

REPORT INFORMATION
  Report Type: Spontaneous
  Country: US (occurrence: US)
  Receive Date: 20180730
  Receipt Date: 20180730
  Transmission Date: 20181010
  Serious: No
  Sender: FDA-Public Use
  Company Number: None

PATIENT
  Age: 64 Year
  Sex: Female

DRUGS (12)
  1. BASAGLAR 100UNITS/ ML [Concomitant]
     Dates: start: 20180212
  2. CALCITRIOL 0.5MCG CAPSULE [Concomitant]
     Dates: start: 20180426
  3. COLCHICINE 0.6 MG TABLETS [Concomitant]
     Dates: start: 20180316
  4. FUROSEMIDE 20 MG TABLETS [Concomitant]
     Dates: start: 20170816
  5. GLIMEPIRIDE 4 MG TABLETS [Concomitant]
     Active Substance: GLIMEPIRIDE
     Dates: start: 20161128
  6. LEVOTHYROXINE 0.137 MG TABLET [Concomitant]
     Dates: start: 20170503
  7. VERAPAMIL 240MG CAPS [Concomitant]
     Dates: start: 20170220
  8. LEVOTHYROXINE 0.137 MG [Concomitant]
     Dates: start: 20170220
  9. NOVOLOG FLEXPEN INJ 3ML [Concomitant]
  10. PRAVASTATIN 40 MG TABLETS [Concomitant]
     Dates: start: 20161128
  11. RAYALDEE [Suspect]
     Active Substance: CALCIFEDIOL
     Indication: HYPERPARATHYROIDISM SECONDARY
     Route: 048
     Dates: start: 20180426, end: 20180531
  12. WELCHOL 625 MG TABLETS [Concomitant]
     Dates: start: 20170831

REACTIONS (1)
  - Nausea [None]

NARRATIVE: CASE EVENT DATE: 20180531
